FAERS Safety Report 15328760 (Version 3)
Quarter: 2018Q3

REPORT INFORMATION
  Report Type: Spontaneous
  Country: US (occurrence: US)
  Receive Date: 20180829
  Receipt Date: 20180920
  Transmission Date: 20181010
  Serious: Yes (Other)
  Sender: FDA-Public Use
  Company Number: US-CIPLA LTD.-2018US20955

PATIENT

DRUGS (3)
  1. GABAPENTIN. [Suspect]
     Active Substance: GABAPENTIN
     Indication: HYPERTENSION
     Dosage: 100 MG, QD, ONE CAPSULE
     Route: 048
  2. GABAPENTIN. [Suspect]
     Active Substance: GABAPENTIN
     Dosage: 100 MG, BID, ONE CAPSULE IN MORNING AND ONE AT NIGHT
     Route: 048
  3. GABAPENTIN. [Suspect]
     Active Substance: GABAPENTIN
     Dosage: UNK (300 MG CAPSULES)
     Route: 048

REACTIONS (2)
  - Urinary incontinence [Not Recovered/Not Resolved]
  - Off label use [Unknown]
